FAERS Safety Report 8187229-4 (Version None)
Quarter: 2012Q1

REPORT INFORMATION
  Report Type: 
  Country: None (occurrence: None)
  Receive Date: 20120302
  Receipt Date: 20110518
  Transmission Date: 20120608
  Serious: Yes (Death)
  Sender: FDA-Public Use
  Company Number: DKLU1077160

PATIENT
  Age: 45 Year
  Sex: Male

DRUGS (3)
  1. MOCLOBEMIDE (MOCLOBEMIDE) [Suspect]
     Indication: PRODUCT USED FOR UNKNOWN INDICATION
  2. DESOXYN [Suspect]
     Indication: PRODUCT USED FOR UNKNOWN INDICATION
  3. AMPHETAMINE SULFATE [Suspect]
     Indication: PRODUCT USED FOR UNKNOWN INDICATION

REACTIONS (5)
  - PULMONARY OEDEMA [None]
  - CORONARY ARTERY OCCLUSION [None]
  - TOXICITY TO VARIOUS AGENTS [None]
  - SUDDEN DEATH [None]
  - DRUG INTERACTION [None]
